FAERS Safety Report 8957160 (Version 1)
Quarter: 2012Q4

REPORT INFORMATION
  Report Type: 
  Country: BE (occurrence: BE)
  Receive Date: 20121210
  Receipt Date: 20121210
  Transmission Date: 20130627
  Serious: Yes (Hospitalization, Other)
  Sender: FDA-Public Use
  Company Number: BE-ROCHE-1162140

PATIENT
  Sex: Female
  Weight: 60 kg

DRUGS (34)
  1. HERCEPTIN [Suspect]
     Indication: BREAST CANCER
     Route: 065
  2. HERCEPTIN [Suspect]
     Route: 065
     Dates: start: 200509, end: 200603
  3. HERCEPTIN [Suspect]
     Route: 065
     Dates: start: 200610, end: 200611
  4. HERCEPTIN [Suspect]
     Route: 065
     Dates: start: 200705, end: 200709
  5. HERCEPTIN [Suspect]
     Route: 065
     Dates: start: 200710
  6. HERCEPTIN [Suspect]
     Route: 065
     Dates: start: 200803
  7. HERCEPTIN [Suspect]
     Route: 065
     Dates: start: 200808
  8. HERCEPTIN [Suspect]
     Route: 065
     Dates: start: 200903
  9. HERCEPTIN [Suspect]
     Route: 065
     Dates: start: 200906
  10. HERCEPTIN [Suspect]
     Route: 065
     Dates: start: 201006
  11. HERCEPTIN [Suspect]
     Route: 065
     Dates: start: 201012
  12. HERCEPTIN [Suspect]
     Route: 065
     Dates: start: 201202
  13. XELODA [Suspect]
     Indication: BREAST CANCER
     Route: 065
     Dates: end: 200612
  14. XELODA [Suspect]
     Route: 065
     Dates: start: 200810
  15. XELODA [Suspect]
     Route: 065
     Dates: start: 201108, end: 201110
  16. TAXOTERE [Suspect]
     Indication: BREAST CANCER
     Route: 065
  17. TAXOTERE [Suspect]
     Route: 065
     Dates: start: 200903
  18. PACLITAXEL [Suspect]
     Indication: BREAST CANCER
     Route: 065
     Dates: start: 200612
  19. PACLITAXEL [Suspect]
     Route: 065
     Dates: start: 200705, end: 200709
  20. PACLITAXEL [Suspect]
     Route: 065
     Dates: start: 200710
  21. PACLITAXEL [Suspect]
     Route: 065
     Dates: start: 200803
  22. PACLITAXEL [Suspect]
     Route: 065
     Dates: start: 200808
  23. PACLITAXEL [Suspect]
     Route: 065
     Dates: start: 201006, end: 201011
  24. PACLITAXEL [Suspect]
     Route: 065
     Dates: start: 201012, end: 201108
  25. PACLITAXEL [Suspect]
     Route: 065
     Dates: start: 201202
  26. VINORELBINE [Suspect]
     Indication: BREAST CANCER
     Route: 065
     Dates: start: 200906
  27. VINORELBINE [Suspect]
     Route: 065
     Dates: start: 201110, end: 201202
  28. CARBOPLATIN [Suspect]
     Indication: BREAST CANCER
     Route: 065
     Dates: start: 201208
  29. GEMCITABINE [Suspect]
     Indication: BREAST CANCER
     Route: 065
     Dates: start: 200612
  30. GEMCITABINE [Suspect]
     Route: 065
     Dates: start: 201205
  31. NOLVADEX [Suspect]
     Indication: BREAST CANCER
     Route: 065
     Dates: start: 200505
  32. ARIMIDEX [Suspect]
     Indication: BREAST CANCER
     Route: 065
     Dates: start: 200506, end: 200509
  33. AROMASIN [Suspect]
     Indication: BREAST CANCER
     Route: 065
     Dates: start: 200608, end: 200609
  34. LAPATINIB [Suspect]
     Indication: BREAST CANCER
     Route: 065
     Dates: start: 200810

REACTIONS (5)
  - Dizziness [Recovered/Resolved]
  - Vomiting [Recovered/Resolved]
  - Balance disorder [Recovered/Resolved]
  - Cardiotoxicity [Recovering/Resolving]
  - Disease progression [Not Recovered/Not Resolved]
